FAERS Safety Report 6511124-7 (Version None)
Quarter: 2009Q4

REPORT INFORMATION
  Report Type: 
  Country: None (occurrence: None)
  Receive Date: 20091222
  Receipt Date: 20091217
  Transmission Date: 20100525
  Serious: Yes (Life-Threatening)
  Sender: FDA-Public Use
  Company Number: FR-KINGPHARMUSA00001-K200901567

PATIENT
  Sex: Female

DRUGS (4)
  1. ALTACE [Suspect]
     Indication: HYPERTENSION
     Dosage: UNK
     Route: 048
     Dates: start: 20090601, end: 20091029
  2. METFORMIN HCL [Concomitant]
     Indication: DIABETES MELLITUS
  3. HUMALOG [Concomitant]
     Indication: DIABETES MELLITUS
  4. LIPAXAN [Concomitant]

REACTIONS (3)
  - HYPERKALAEMIA [None]
  - VENTRICULAR ARRHYTHMIA [None]
  - VENTRICULAR EXTRASYSTOLES [None]
